FAERS Safety Report 4456212-4 (Version None)
Quarter: 2004Q3

REPORT INFORMATION
  Report Type: 
  Country: None (occurrence: None)
  Receive Date: 20040920
  Receipt Date: 20040906
  Transmission Date: 20050211
  Serious: Yes (Disabling)
  Sender: FDA-Public Use
  Company Number: 04P-056-0253858-00

PATIENT
  Age: 49 Year
  Sex: Male
  Weight: 76 kg

DRUGS (2)
  1. TRICOR [Suspect]
     Indication: HYPERTRIGLYCERIDAEMIA
     Dosage: 160 MG, 1 IN 1 D, PER ORAL
     Route: 048
     Dates: start: 20021107, end: 20030711
  2. ESOMEPRAZOLE [Concomitant]

REACTIONS (16)
  - ARTHRALGIA [None]
  - ARTHROPATHY [None]
  - BLOOD CREATINE PHOSPHOKINASE INCREASED [None]
  - CHEST PAIN [None]
  - DIFFICULTY IN WALKING [None]
  - GENERAL PHYSICAL HEALTH DETERIORATION [None]
  - HYPOAESTHESIA [None]
  - INSOMNIA [None]
  - JOINT STIFFNESS [None]
  - LOCALISED OSTEOARTHRITIS [None]
  - MUSCLE CRAMP [None]
  - MYALGIA [None]
  - MYOSITIS [None]
  - OSTEOARTHRITIS [None]
  - PARAESTHESIA [None]
  - SPINAL OSTEOARTHRITIS [None]
